FAERS Safety Report 10373798 (Version 3)
Quarter: 2014Q4

REPORT INFORMATION
  Report Type: Report from Study
  Country: BR (occurrence: BR)
  Receive Date: 20140809
  Receipt Date: 20141027
  Transmission Date: 20150528
  Serious: Yes (Other)
  Sender: FDA-Public Use
  Company Number: BR-ABBVIE-14K-020-1268518-00

PATIENT
  Age: 48 Year
  Sex: Female
  Weight: 58 kg

DRUGS (4)
  1. OMEPRAZOLE. [Concomitant]
     Active Substance: OMEPRAZOLE
     Indication: PROPHYLAXIS
     Dosage: IN FASTING
     Route: 048
     Dates: start: 2007
  2. OMEPRAZOLE. [Concomitant]
     Active Substance: OMEPRAZOLE
     Indication: GASTRIC DISORDER
  3. HUMIRA [Suspect]
     Active Substance: ADALIMUMAB
     Indication: RHEUMATOID ARTHRITIS
     Route: 058
     Dates: start: 20100408, end: 20140211
  4. HUMIRA [Suspect]
     Active Substance: ADALIMUMAB
     Route: 058
     Dates: start: 201404

REACTIONS (17)
  - Immune system disorder [Unknown]
  - Osteitis [Not Recovered/Not Resolved]
  - Rheumatoid arthritis [Not Recovered/Not Resolved]
  - Synovitis [Not Recovered/Not Resolved]
  - Arthropathy [Not Recovered/Not Resolved]
  - Bone marrow oedema [Not Recovered/Not Resolved]
  - Joint effusion [Not Recovered/Not Resolved]
  - Sinusitis [Recovering/Resolving]
  - Joint injury [Not Recovered/Not Resolved]
  - Urinary tract infection [Recovered/Resolved]
  - Vitamin D deficiency [Not Recovered/Not Resolved]
  - Depression [Unknown]
  - Pain [Recovering/Resolving]
  - Drug ineffective [Recovering/Resolving]
  - Tendonitis [Not Recovered/Not Resolved]
  - Inflammation [Not Recovered/Not Resolved]
  - Rheumatoid factor increased [Unknown]

NARRATIVE: CASE EVENT DATE: 201403
